FAERS Safety Report 4391148-9 (Version None)
Quarter: 2004Q3

REPORT INFORMATION
  Report Type: 
  Country: None (occurrence: None)
  Receive Date: 20040707
  Receipt Date: 20040319
  Transmission Date: 20050211
  Serious: Yes (Death, Other)
  Sender: FDA-Public Use
  Company Number: US-BRISTOL-MYERS SQUIBB COMPANY-12538419

PATIENT
  Age: 32 Year
  Sex: Male

DRUGS (6)
  1. TEQUIN [Suspect]
     Indication: PNEUMONIA
     Route: 042
     Dates: start: 20031216, end: 20031219
  2. PENICILLIN [Concomitant]
  3. CLINDAMYCIN [Concomitant]
  4. LORTAB [Concomitant]
  5. PREDNISONE [Concomitant]
  6. COUGH MEDICATION [Concomitant]

REACTIONS (5)
  - CARDIO-RESPIRATORY ARREST [None]
  - INFLUENZA [None]
  - PNEUMOTHORAX [None]
  - PYOTHORAX [None]
  - RESPIRATORY FAILURE [None]
